FAERS Safety Report 25980877 (Version 2)
Quarter: 2025Q4

REPORT INFORMATION
  Report Type: Spontaneous
  Country: US (occurrence: US)
  Receive Date: 20251030
  Receipt Date: 20251110
  Transmission Date: 20260118
  Serious: No
  Sender: MITSUBISHI TANABE PHARMA
  Company Number: US-MTPC-MTPA2025-0019152

PATIENT
  Age: 71 Year
  Sex: Female

DRUGS (9)
  1. RADICAVA ORS [Suspect]
     Active Substance: EDARAVONE
     Dosage: 105 MG (5 ML) ONCE DAILY FOR 10 DAYS WITHIN A 14-DAY  PERIOD, FOLLOWED BY A 14-DAY DRUG-FREE PERIOD
     Route: 048
  2. RADICAVA ORS [Suspect]
     Active Substance: EDARAVONE
     Dosage: 105 MG (5 ML) ONCE DAILY FOR 10 DAYS WITHIN A 14-DAY  PERIOD, FOLLOWED BY A 14-DAY DRUG-FREE PERIOD
     Route: 048
  3. RADICAVA ORS [Suspect]
     Active Substance: EDARAVONE
     Indication: Amyotrophic lateral sclerosis
     Dosage: 105 MG (5 ML) ONCE DAILY FOR 14 DAYS, FOLLOWED BY A 14-DAY DRUG-FREE PERIOD
     Route: 048
     Dates: start: 20250614
  4. RADICAVA ORS [Suspect]
     Active Substance: EDARAVONE
     Indication: Amyotrophic lateral sclerosis
     Dosage: 105 MG (5 ML) ONCE DAILY FOR 14 DAYS, FOLLOWED BY A 14-DAY DRUG-FREE PERIOD
     Route: 048
     Dates: start: 20250614
  5. AMLODIPINE [Concomitant]
     Active Substance: AMLODIPINE BESYLATE
     Indication: Product used for unknown indication
     Dosage: 10 MILLIGRAM, QD
     Route: 065
  6. ASPIRIN [Concomitant]
     Active Substance: ASPIRIN
     Indication: Product used for unknown indication
     Dosage: 81 MILLIGRAM, QD
     Route: 065
  7. ATORVASTATIN [Concomitant]
     Active Substance: ATORVASTATIN
     Indication: Product used for unknown indication
     Dosage: 40 MILLIGRAM, QD
     Route: 065
  8. LEVOTHYROXINE [Concomitant]
     Active Substance: LEVOTHYROXINE
     Indication: Product used for unknown indication
     Dosage: 75 MICROGRAM, QD
     Route: 065
  9. LISINOPRIL AND HYDROCHLOROTHIAZIDE [Concomitant]
     Active Substance: HYDROCHLOROTHIAZIDE\LISINOPRIL
     Indication: Product used for unknown indication
     Dosage: 20-25MG, QD
     Route: 065

REACTIONS (1)
  - Incorrect dose administered [Not Recovered/Not Resolved]

NARRATIVE: CASE EVENT DATE: 20250915
